FAERS Safety Report 20101907 (Version 5)
Quarter: 2022Q3

REPORT INFORMATION
  Report Type: Spontaneous
  Country: US (occurrence: US)
  Receive Date: 20211123
  Receipt Date: 20220928
  Transmission Date: 20221027
  Serious: Yes (Death, Hospitalization, Other)
  Sender: FDA-Public Use
  Company Number: US-ORGANON-O2111USA002475

PATIENT
  Sex: Female
  Weight: 125.65 kg

DRUGS (6)
  1. NEXPLANON [Suspect]
     Active Substance: ETONOGESTREL
     Indication: Contraception
     Dosage: NEXPLANON 68 MG SUBCUTANEOUS IMPLANT, 68 MG= 1 EA, SUBCUT, ONCE IN LEFT ARM
     Route: 059
     Dates: start: 20190321
  2. WARFARIN [Concomitant]
     Active Substance: WARFARIN
     Dosage: WARFARIN 4 MG ORAL TABLET, 4 MG= 1 TAB(S), PO,AT BEDTIME
     Route: 048
  3. MELATONIN [Concomitant]
     Active Substance: MELATONIN
     Dosage: MELATONIN 5 MG ORAL TABLET, DISINTEGRATING, 5 MG= 1 TAB(S), PO, AT BEDTIME, PRN
  4. LORATADINE [Concomitant]
     Active Substance: LORATADINE
     Indication: Hypersensitivity
     Dosage: 10 MG ORAL TABLET, 10 MG= 1 TAB(S), PO,DAILY, PRN
  5. ACETAMINOPHEN [Concomitant]
     Active Substance: ACETAMINOPHEN
     Indication: Pain
     Dosage: 325 MG ORAL TABLET, 650 MG= 2 TAB(S), PO, Q4HR, PRN
     Route: 048
  6. IBUPROFEN [Concomitant]
     Active Substance: IBUPROFEN
     Indication: Pain
     Dosage: 2 TABLET(S) ORAL EVERY 4 HOURS AS NEEDED FOR PAIN.

REACTIONS (12)
  - Embolism venous [Fatal]
  - Pulmonary infarction [Unknown]
  - Cor pulmonale acute [Unknown]
  - Acute respiratory failure [Unknown]
  - Cardio-respiratory arrest [Unknown]
  - Pulmonary embolism [Unknown]
  - Pneumonia [Unknown]
  - Sepsis [Unknown]
  - Upper respiratory tract infection [Unknown]
  - Costochondritis [Unknown]
  - Back pain [Unknown]
  - Vomiting [Unknown]

NARRATIVE: CASE EVENT DATE: 20190604
